FAERS Safety Report 4817374-X (Version None)
Quarter: 2005Q4

REPORT INFORMATION
  Report Type: 
  Country: None (occurrence: None)
  Receive Date: 20051031
  Receipt Date: 20051018
  Transmission Date: 20060501
  Serious: Yes (Death)
  Sender: FDA-Public Use
  Company Number: 12658

PATIENT
  Age: 59 Year
  Sex: Female

DRUGS (4)
  1. VINCRISTINE [Suspect]
     Indication: ACUTE LYMPHOCYTIC LEUKAEMIA
     Dosage: 2 MG INVEN
     Route: 042
  2. CYTARABINE [Concomitant]
  3. PREDNISONE [Concomitant]
  4. DAUNORUBICIN [Concomitant]

REACTIONS (16)
  - ASTHENIA [None]
  - CHILLS [None]
  - COMA [None]
  - DISORIENTATION [None]
  - DRUG ADMINISTRATION ERROR [None]
  - HYPOTENSION [None]
  - MENTAL STATUS CHANGES [None]
  - NAUSEA [None]
  - NEUROTOXICITY [None]
  - NYSTAGMUS [None]
  - PYREXIA [None]
  - STARING [None]
  - STUPOR [None]
  - TACHYCARDIA [None]
  - TREMOR [None]
  - VOMITING [None]
